FAERS Safety Report 8977470 (Version 2)
Quarter: 2013Q1

REPORT INFORMATION
  Report Type: Spontaneous
  Country: JP (occurrence: JP)
  Receive Date: 20121219
  Receipt Date: 20130116
  Transmission Date: 20140127
  Serious: Yes (Hospitalization)
  Sender: FDA-Public Use
  Company Number: JP-009507513-1212JPN006345

PATIENT
  Age: 66 Year
  Sex: Male
  Weight: 71 kg

DRUGS (13)
  1. PEGINTRON [Suspect]
     Indication: CHRONIC HEPATITIS C
     Dosage: 1.5 MICROGRAM PER KILOGRAM, QW
     Route: 058
     Dates: start: 20121107
  2. PEGINTRON [Suspect]
     Dosage: 1.13 MICROGRAM PER KILOGRAM, QW
     Route: 058
     Dates: start: 20121114
  3. REBETOL [Suspect]
     Indication: CHRONIC HEPATITIS C
     Dosage: 800 MG, QD
     Route: 048
     Dates: start: 20121107, end: 20121119
  4. REBETOL [Suspect]
     Dosage: 400 MG, QD
     Route: 048
     Dates: start: 20121120, end: 20121127
  5. REBETOL [Suspect]
     Dosage: 200 MG, QD
     Route: 048
     Dates: start: 20121128
  6. TELAVIC [Suspect]
     Indication: CHRONIC HEPATITIS C
     Dosage: 1500 MG, QD
     Route: 048
     Dates: start: 20121107, end: 20121111
  7. TELAVIC [Suspect]
     Dosage: 1500 MG, QD
     Route: 048
     Dates: start: 20121113
  8. URSO [Concomitant]
     Indication: CHRONIC HEPATITIS C
     Dosage: 600 MG, QD, FORMULATION: POR
     Route: 048
     Dates: end: 20121122
  9. GASTER D [Concomitant]
     Indication: PROPHYLAXIS
     Dosage: 40 MG, QD
     Route: 048
     Dates: start: 20121107
  10. PROMAC (POLAPREZINC) [Concomitant]
     Indication: PROPHYLAXIS
     Dosage: 150 MG, QD
     Route: 048
     Dates: start: 20121107
  11. LOXONIN [Concomitant]
     Indication: PROPHYLAXIS
     Dosage: 120 MG, QD
     Route: 048
     Dates: start: 20121107
  12. ALOSITOL [Concomitant]
     Indication: PROPHYLAXIS
     Dosage: 200 MG, QD
     Route: 048
     Dates: start: 20121107, end: 20121119
  13. DEPAS [Concomitant]
     Dosage: 0.5 MG, QD
     Route: 048
     Dates: start: 20121114

REACTIONS (1)
  - Erythema [Recovered/Resolved]
